FAERS Safety Report 4433090-0 (Version None)
Quarter: 2004Q3

REPORT INFORMATION
  Report Type: 
  Country: None (occurrence: None)
  Receive Date: 20040823
  Receipt Date: 20040811
  Transmission Date: 20050211
  Serious: Yes (Death, Hospitalization)
  Sender: FDA-Public Use
  Company Number: 2004-07-0999

PATIENT
  Age: 71 Year
  Sex: Male
  Weight: 73.9363 kg

DRUGS (6)
  1. TEMODAR [Suspect]
     Indication: BRAIN NEOPLASM MALIGNANT
     Dosage: 140 MG QD ORAL
     Route: 048
     Dates: start: 20040402, end: 20040414
  2. DEXAMETHASONE [Concomitant]
  3. DILANTIN [Concomitant]
  4. OXANDROLONE [Concomitant]
  5. DURAGESIC [Concomitant]
  6. PREVACID [Concomitant]
     Indication: GASTROOESOPHAGEAL REFLUX DISEASE
     Dosage: 30MG QD

REACTIONS (2)
  - LOBAR PNEUMONIA [None]
  - PAIN [None]
